FAERS Safety Report 9297705 (Version 1)
Quarter: 2013Q2

REPORT INFORMATION
  Report Type: Spontaneous
  Country: US (occurrence: US)
  Receive Date: 20130520
  Receipt Date: 20130520
  Transmission Date: 20140414
  Serious: No
  Sender: FDA-Public Use
  Company Number: US-PFIZER INC-2013154355

PATIENT
  Age: 30 Year
  Sex: Female
  Weight: 113 kg

DRUGS (4)
  1. LYRICA [Suspect]
     Indication: FIBROMYALGIA
     Dosage: 150 MG, 2X/DAY
     Dates: start: 20130513, end: 20130513
  2. LYRICA [Suspect]
     Dosage: 75 MG, 2X/DAY
     Dates: start: 20130514, end: 20130515
  3. AMITRIPTYLINE [Concomitant]
     Indication: SLEEP DISORDER
     Dosage: DAILY AT NIGHT
  4. DICLOFENAC [Concomitant]
     Indication: PAIN
     Dosage: TWO TIMES A DAY

REACTIONS (3)
  - Pyrexia [Not Recovered/Not Resolved]
  - Malaise [Not Recovered/Not Resolved]
  - Chills [Not Recovered/Not Resolved]
